FAERS Safety Report 5992809-8 (Version None)
Quarter: 2008Q4

REPORT INFORMATION
  Report Type: 
  Country: None (occurrence: None)
  Receive Date: 20081211
  Receipt Date: 20081205
  Transmission Date: 20090506
  Serious: Yes (Other)
  Sender: FDA-Public Use
  Company Number: US-JNJCH-2008056730

PATIENT
  Age: 24 Year
  Sex: Male
  Weight: 86.2 kg

DRUGS (1)
  1. SUDAFED PE NON DRYING SINUS [Suspect]
     Indication: NASOPHARYNGITIS
     Dosage: TEXT:ONE ONCE DAILY
     Route: 048

REACTIONS (2)
  - EPISTAXIS [None]
  - MOUTH HAEMORRHAGE [None]
